FAERS Safety Report 22969446 (Version 4)
Quarter: 2023Q4

REPORT INFORMATION
  Report Type: Report from Study
  Country: JP (occurrence: JP)
  Receive Date: 20230922
  Receipt Date: 20231113
  Transmission Date: 20240110
  Serious: Yes (Other)
  Sender: FDA-Public Use
  Company Number: JP-002147023-NVSJ2023JP012885

PATIENT
  Age: 40 Year
  Sex: Female

DRUGS (4)
  1. SCEMBLIX [Suspect]
     Active Substance: ASCIMINIB HYDROCHLORIDE
     Indication: Chronic myeloid leukaemia
     Dosage: 40 MG
     Route: 048
     Dates: start: 20220926, end: 20221031
  2. SCEMBLIX [Suspect]
     Active Substance: ASCIMINIB HYDROCHLORIDE
     Dosage: 80 MG
     Route: 048
     Dates: start: 20221101
  3. PREGABALIN [Concomitant]
     Active Substance: PREGABALIN
     Indication: Product used for unknown indication
     Dosage: UNK
     Route: 065
  4. DIENOGEST [Concomitant]
     Active Substance: DIENOGEST
     Indication: Product used for unknown indication
     Dosage: UNK
     Route: 065

REACTIONS (3)
  - Weight increased [Not Recovered/Not Resolved]
  - Drug level increased [Unknown]
  - Generalised oedema [Unknown]

NARRATIVE: CASE EVENT DATE: 20221031
